FAERS Safety Report 8416226-6 (Version None)
Quarter: 2012Q2

REPORT INFORMATION
  Report Type: 
  Country: None (occurrence: None)
  Receive Date: 20120530
  Receipt Date: 20120518
  Transmission Date: 20120825
  Serious: Yes (Hospitalization)
  Sender: FDA-Public Use
  Company Number: AUR-APL-2012-02328

PATIENT
  Age: 40 Year
  Sex: Female

DRUGS (1)
  1. AMOXICILLIN [Suspect]
     Indication: PRODUCT USED FOR UNKNOWN INDICATION
     Dosage: (1 DOSAGE FORMS, TOTAL) . ORAL
     Route: 048
     Dates: start: 20120516, end: 20120516

REACTIONS (6)
  - GENERALISED ERYTHEMA [None]
  - PRURITUS GENERALISED [None]
  - DYSPNOEA [None]
  - LARYNGEAL OEDEMA [None]
  - LIP OEDEMA [None]
  - RASH PRURITIC [None]
